FAERS Safety Report 14398694 (Version 2)
Quarter: 2018Q1

REPORT INFORMATION
  Report Type: Spontaneous
  Country: GB (occurrence: GB)
  Receive Date: 20180117
  Receipt Date: 20180117
  Transmission Date: 20180509
  Serious: Yes (Death, Hospitalization, Other)
  Sender: FDA-Public Use
  Company Number: GB-MYLANLABS-2018M1002424

PATIENT
  Age: 63 Year
  Sex: Male

DRUGS (2)
  1. CLOZARIL [Suspect]
     Active Substance: CLOZAPINE
     Indication: SCHIZOPHRENIA
     Dosage: UNK
     Route: 048
     Dates: start: 19960924
  2. CLOZARIL [Suspect]
     Active Substance: CLOZAPINE
     Dosage: 1 DF, UNK
     Route: 048
     Dates: start: 20180108

REACTIONS (5)
  - Death [Fatal]
  - Sepsis [Unknown]
  - Sedation [Unknown]
  - Peritoneal dialysis [Recovering/Resolving]
  - Contraindicated product administered [Unknown]

NARRATIVE: CASE EVENT DATE: 20180108
